FAERS Safety Report 15949244 (Version 3)
Quarter: 2019Q2

REPORT INFORMATION
  Report Type: Report from Study
  Country: US (occurrence: US)
  Receive Date: 20190212
  Receipt Date: 20190515
  Transmission Date: 20190711
  Serious: Yes (Other)
  Sender: FDA-Public Use
  Company Number: US-ASTELLAS-2019US004029

PATIENT
  Age: 62 Year
  Sex: Male

DRUGS (1)
  1. ASP2215 [Suspect]
     Active Substance: GILTERITINIB
     Indication: ACUTE MYELOID LEUKAEMIA
     Route: 048
     Dates: start: 20181218

REACTIONS (3)
  - Fatigue [Unknown]
  - Biliary colic [Unknown]
  - Hypotension [Unknown]

NARRATIVE: CASE EVENT DATE: 20190125
